FAERS Safety Report 12768594 (Version 1)
Quarter: 2016Q3

REPORT INFORMATION
  Report Type: Spontaneous
  Country: US (occurrence: US)
  Receive Date: 20160921
  Receipt Date: 20160921
  Transmission Date: 20161109
  Serious: Yes (Hospitalization, Disabling, Other)
  Sender: FDA-Public Use
  Company Number: US-009507513-1110USA04117

PATIENT
  Sex: Female
  Weight: 76.66 kg

DRUGS (4)
  1. FOSAMAX [Suspect]
     Active Substance: ALENDRONATE SODIUM
     Indication: OSTEOPOROSIS
     Dosage: UNK UNK, UNKNOWN
     Route: 048
     Dates: start: 1995, end: 2010
  2. CALCIUM (UNSPECIFIED) [Concomitant]
     Active Substance: CALCIUM
     Indication: PRODUCT USED FOR UNKNOWN INDICATION
     Dosage: UNK UNK, UNKNOWN
     Route: 065
  3. FOSAMAX [Suspect]
     Active Substance: ALENDRONATE SODIUM
     Indication: OSTEOPENIA
     Dosage: 70 MG, QW
     Route: 048
     Dates: start: 200401, end: 200807
  4. VITAMINS (UNSPECIFIED) [Concomitant]
     Active Substance: VITAMINS
     Indication: PRODUCT USED FOR UNKNOWN INDICATION
     Dosage: UNK, UNKNOWN
     Route: 048

REACTIONS (42)
  - Foot fracture [Unknown]
  - Synovial cyst [Unknown]
  - Pneumonia [Unknown]
  - Urinary tract infection [Unknown]
  - Pericarditis [Unknown]
  - Femur fracture [Unknown]
  - Fracture nonunion [Unknown]
  - Joint injury [Unknown]
  - Hypertension [Unknown]
  - Chronic obstructive pulmonary disease [Unknown]
  - Left ventricular hypertrophy [Unknown]
  - Anxiety [Unknown]
  - Oral neoplasm [Unknown]
  - Cardiac failure congestive [Unknown]
  - Cataract [Unknown]
  - Gastritis [Unknown]
  - Sinusitis [Unknown]
  - Gastrooesophageal reflux disease [Unknown]
  - Intervertebral disc disorder [Unknown]
  - Rotator cuff syndrome [Unknown]
  - Abdominal discomfort [Unknown]
  - Depression [Unknown]
  - Oral infection [Unknown]
  - Bursitis [Unknown]
  - Cyst [Unknown]
  - Lung disorder [Unknown]
  - Breast cancer [Unknown]
  - Rib fracture [Unknown]
  - Tooth disorder [Unknown]
  - Impaired healing [Unknown]
  - Sacroiliitis [Unknown]
  - Weight decreased [Unknown]
  - Adverse drug reaction [Unknown]
  - Blindness [Unknown]
  - Blood pressure abnormal [Unknown]
  - Fibula fracture [Unknown]
  - Fall [Unknown]
  - Left atrial enlargement [Unknown]
  - Tooth abscess [Unknown]
  - Bursitis [Recovering/Resolving]
  - Pulmonary oedema [Unknown]
  - Cataract [Unknown]

NARRATIVE: CASE EVENT DATE: 19970512
